FAERS Safety Report 23114963 (Version 1)
Quarter: 2023Q4

REPORT INFORMATION
  Report Type: Spontaneous
  Country: US (occurrence: US)
  Receive Date: 20231027
  Receipt Date: 20231027
  Transmission Date: 20240110
  Serious: Yes (Hospitalization)
  Sender: FDA-Public Use
  Company Number: US-JNJFOC-20231045639

PATIENT

DRUGS (1)
  1. DARZALEX [Suspect]
     Active Substance: DARATUMUMAB
     Indication: Product used for unknown indication
     Dosage: LAST DOSE WAS ADMINISTERED ON 23-JUN-2023
     Route: 065
     Dates: start: 202301

REACTIONS (4)
  - Femur fracture [Unknown]
  - Adverse event [Unknown]
  - COVID-19 [Unknown]
  - Escherichia infection [Unknown]
